FAERS Safety Report 4340583-3 (Version None)
Quarter: 2004Q2

REPORT INFORMATION
  Report Type: 
  Country: None (occurrence: None)
  Receive Date: 20040414
  Receipt Date: 20040211
  Transmission Date: 20050107
  Serious: Yes (Life-Threatening, Hospitalization)
  Sender: FDA-Public Use
  Company Number: A044-002-004848

PATIENT
  Sex: Female

DRUGS (4)
  1. ARICEPT [Suspect]
     Dosage: 5 MG, 1 IN 1 D, ORAL; SEE IMAGE
     Route: 048
     Dates: start: 20030301, end: 20030101
  2. ARICEPT [Suspect]
     Dosage: 5 MG, 1 IN 1 D, ORAL; SEE IMAGE
     Route: 048
     Dates: start: 20030101, end: 20031101
  3. ARICEPT [Suspect]
     Dosage: 5 MG, 1 IN 1 D, ORAL; SEE IMAGE
     Route: 048
     Dates: start: 20030101
  4. ANTI-VITAMIN K [Concomitant]

REACTIONS (8)
  - ANAEMIA [None]
  - EATING DISORDER [None]
  - GASTROINTESTINAL HAEMORRHAGE [None]
  - ISCHAEMIC STROKE [None]
  - NAUSEA [None]
  - OESOPHAGEAL ULCER [None]
  - OESOPHAGITIS [None]
  - WEIGHT DECREASED [None]
